FAERS Safety Report 8955543 (Version 1)
Quarter: 2012Q4

REPORT INFORMATION
  Report Type: 
  Country: US (occurrence: US)
  Receive Date: 20121210
  Receipt Date: 20121210
  Transmission Date: 20130627
  Serious: Yes (Other)
  Sender: FDA-Public Use
  Company Number: US-AMGEN-USASP2012077632

PATIENT
  Age: 70 Year
  Sex: Female

DRUGS (3)
  1. NEUPOGEN [Suspect]
     Indication: PRODUCT USED FOR UNKNOWN INDICATION
     Dosage: 300 mug, qd
     Dates: start: 20121010
  2. CHEMOTHERAPEUTICS [Concomitant]
     Indication: UTERINE CANCER
     Dosage: UNK
  3. CHEMOTHERAPEUTICS [Concomitant]
     Indication: OVARIAN CANCER

REACTIONS (1)
  - Neutrophil count decreased [Unknown]
